FAERS Safety Report 8845387 (Version 2)
Quarter: 2014Q3

REPORT INFORMATION
  Report Type: Spontaneous
  Country: US (occurrence: None)
  Receive Date: 20121015
  Receipt Date: 20140730
  Transmission Date: 20150326
  Serious: Yes (Hospitalization)
  Sender: FDA-Public Use
  Company Number: 2009001507

PATIENT
  Age: 79 Year
  Sex: Female

DRUGS (7)
  1. AMBIEN (ZOLPIDEM TARTRATE) [Concomitant]
  2. TARCEVA [Suspect]
     Active Substance: ERLOTINIB HYDROCHLORIDE
     Indication: NON-SMALL CELL LUNG CANCER
     Route: 048
     Dates: start: 20070509
  3. OXYCODONE [Concomitant]
     Active Substance: OXYCODONE
  4. IPRATROPIUM/ALBUTEROL (IPRATROPIUM BROMIDE, SALBUTAMOL SULFATE) [Concomitant]
  5. DILANTIN [Suspect]
     Active Substance: PHENYTOIN
     Indication: PRODUCT USED FOR UNKNOWN INDICATION
  6. SPIRIVA [Concomitant]
     Active Substance: TIOTROPIUM BROMIDE MONOHYDRATE
  7. ADVAIR DISKUS [Concomitant]
     Active Substance: FLUTICASONE PROPIONATE\SALMETEROL XINAFOATE

REACTIONS (8)
  - Hip fracture [None]
  - Dermatitis acneiform [None]
  - Asthenia [None]
  - Dyspnoea [None]
  - Incorrect dose administered [None]
  - Toxicity to various agents [None]
  - Decubitus ulcer [None]
  - Pneumonia aspiration [None]

NARRATIVE: CASE EVENT DATE: 20070509
